FAERS Safety Report 8270160-3 (Version None)
Quarter: 2012Q2

REPORT INFORMATION
  Report Type: 
  Country: None (occurrence: None)
  Receive Date: 20120410
  Receipt Date: 20120405
  Transmission Date: 20120825
  Serious: Yes (Hospitalization, Other)
  Sender: FDA-Public Use
  Company Number: PHHY2010CA30830

PATIENT
  Sex: Female

DRUGS (3)
  1. ZOLEDRONOC ACID [Suspect]
     Dosage: UNK
     Route: 042
     Dates: start: 20100519
  2. ZOLEDRONOC ACID [Suspect]
     Indication: OSTEOPOROSIS
     Dosage: UNK
     Route: 042
     Dates: start: 20090507
  3. CALCIUM CARBONATE [Concomitant]
     Dosage: UNK

REACTIONS (5)
  - FALL [None]
  - PAIN [None]
  - ARRHYTHMIA [None]
  - GAIT DISTURBANCE [None]
  - HYPOTHYROIDISM [None]
